FAERS Safety Report 5281026-5 (Version None)
Quarter: 2007Q1

REPORT INFORMATION
  Report Type: 
  Country: None (occurrence: None)
  Receive Date: 20061229
  Receipt Date: 20060824
  Transmission Date: 20070707
  Serious: Yes (Other)
  Sender: FDA-Public Use
  Company Number: 2006UW16168

PATIENT
  Age: 57 Year
  Sex: Female
  Weight: 68.038 kg

DRUGS (8)
  1. CRESTOR [Suspect]
     Dosage: 20 MG DAILY PO
     Route: 048
     Dates: start: 20040101
  2. LISINOPRIL [Concomitant]
  3. ASPIRIN [Concomitant]
  4. ACIPHEX [Concomitant]
  5. VITAMIN CAP [Concomitant]
  6. COQ10 [Concomitant]
  7. FISH OIL [Concomitant]
  8. CALCIUM [Concomitant]

REACTIONS (1)
  - HAIR COLOUR CHANGES [None]
